FAERS Safety Report 6250588-3 (Version None)
Quarter: 2009Q2

REPORT INFORMATION
  Report Type: 
  Country: None (occurrence: None)
  Receive Date: 20090626
  Receipt Date: 20090617
  Transmission Date: 20091009
  Serious: Yes (Other)
  Sender: FDA-Public Use
  Company Number: VISP-NO-0906S-0281

PATIENT
  Age: 93 Year
  Sex: Female

DRUGS (1)
  1. VISIPAQUE [Suspect]
     Indication: PULMONARY EMBOLISM
     Dosage: 50 ML, SINGLE DOSE, I.V.
     Route: 042
     Dates: start: 20090103, end: 20090103

REACTIONS (1)
  - INJECTION SITE EXTRAVASATION [None]
